FAERS Safety Report 25289579 (Version 1)
Quarter: 2025Q2

REPORT INFORMATION
  Report Type: Spontaneous
  Country: GB (occurrence: GB)
  Receive Date: 20250509
  Receipt Date: 20250509
  Transmission Date: 20250717
  Serious: Yes (Other)
  Sender: EMD SERONO INC
  Company Number: GB-Merck Healthcare KGaA-2025022396

PATIENT
  Sex: Female

DRUGS (8)
  1. MAVENCLAD [Suspect]
     Active Substance: CLADRIBINE
     Indication: Multiple sclerosis
     Dates: start: 20190501, end: 20190505
  2. MAVENCLAD [Suspect]
     Active Substance: CLADRIBINE
     Dates: start: 20190710, end: 20190714
  3. MAVENCLAD [Suspect]
     Active Substance: CLADRIBINE
     Dates: start: 20200914, end: 20200918
  4. MAVENCLAD [Suspect]
     Active Substance: CLADRIBINE
     Dates: start: 20201012, end: 20201016
  5. GABAPENTIN [Concomitant]
     Active Substance: GABAPENTIN
     Indication: Product used for unknown indication
  6. GABAPENTIN [Concomitant]
     Active Substance: GABAPENTIN
  7. VITAMIN D3 [Concomitant]
     Active Substance: CHOLECALCIFEROL
     Indication: Product used for unknown indication
  8. COD LIVER OIL [Concomitant]
     Active Substance: COD LIVER OIL
     Indication: Product used for unknown indication

REACTIONS (1)
  - Endometrial adenocarcinoma [Unknown]
